FAERS Safety Report 20620839 (Version 2)
Quarter: 2022Q2

REPORT INFORMATION
  Report Type: Spontaneous
  Country: US (occurrence: US)
  Receive Date: 20220322
  Receipt Date: 20220418
  Transmission Date: 20220721
  Serious: No
  Sender: FDA-Public Use
  Company Number: US-PFIZER INC-202200322275

PATIENT
  Age: 13 Year
  Sex: Female
  Weight: 17.69 kg

DRUGS (1)
  1. GENOTROPIN [Suspect]
     Active Substance: SOMATROPIN
     Dosage: UNK

REACTIONS (3)
  - Device ineffective [Unknown]
  - Product dose omission issue [Unknown]
  - Expired device used [Unknown]
